FAERS Safety Report 5760102-4 (Version None)
Quarter: 2008Q2

REPORT INFORMATION
  Report Type: 
  Country: None (occurrence: None)
  Receive Date: 20080605
  Receipt Date: 20080528
  Transmission Date: 20081010
  Serious: Yes (Hospitalization)
  Sender: FDA-Public Use
  Company Number: FR-ABBOTT-08P-056-0454112-00

PATIENT
  Sex: Male
  Weight: 56 kg

DRUGS (3)
  1. RITONAVIR SOFT GELATIN CAPSULES [Suspect]
     Indication: HIV INFECTION
  2. TMC114 [Concomitant]
     Indication: HIV INFECTION
  3. TMC 125 (BLINDED) [Concomitant]
     Indication: HIV INFECTION

REACTIONS (2)
  - OSTEONECROSIS [None]
  - SPINAL CORD COMPRESSION [None]
